FAERS Safety Report 21445230 (Version 1)
Quarter: 2022Q4

REPORT INFORMATION
  Report Type: Report from Study
  Country: US (occurrence: None)
  Receive Date: 20221012
  Receipt Date: 20221012
  Transmission Date: 20230112
  Serious: Yes (Death)
  Sender: FDA-Public Use
  Company Number: 2022A342565

PATIENT
  Age: 31833 Day
  Sex: Male

DRUGS (1)
  1. FARXIGA [Suspect]
     Active Substance: DAPAGLIFLOZIN PROPANEDIOL
     Indication: Cardiomyopathy
     Route: 048
     Dates: start: 202204

REACTIONS (1)
  - Death [Fatal]

NARRATIVE: CASE EVENT DATE: 20220531
